FAERS Safety Report 13074928 (Version 1)
Quarter: 2016Q4

REPORT INFORMATION
  Report Type: Spontaneous
  Country: US (occurrence: US)
  Receive Date: 20161230
  Receipt Date: 20161230
  Transmission Date: 20170207
  Serious: No
  Sender: FDA-Public Use
  Company Number: US-PFIZER INC-2016602795

PATIENT
  Age: 67 Year
  Sex: Female
  Weight: 85 kg

DRUGS (4)
  1. LEVOTHYROXINE. [Concomitant]
     Active Substance: LEVOTHYROXINE
     Indication: HYPOTHYROIDISM
     Dosage: 50 UG, 1X/DAY
     Route: 048
     Dates: start: 2014
  2. METOPROLOL TARTRATE. [Interacting]
     Active Substance: METOPROLOL TARTRATE
     Indication: ATRIAL FIBRILLATION
     Dosage: 50 MG, 2X/DAY
     Route: 048
  3. METOPROLOL TARTRATE. [Interacting]
     Active Substance: METOPROLOL TARTRATE
     Indication: TACHYCARDIA
  4. EMERGEN-C [Suspect]
     Active Substance: VITAMINS
     Indication: IMMUNE ENHANCEMENT THERAPY
     Dosage: UNK (1 PACKET BY MOUTH OFF AND ON)
     Dates: start: 2016, end: 201611

REACTIONS (1)
  - Drug interaction [Unknown]
